FAERS Safety Report 7044421-X (Version None)
Quarter: 2010Q4

REPORT INFORMATION
  Report Type: 
  Country: None (occurrence: None)
  Receive Date: 20101008
  Receipt Date: 20100923
  Transmission Date: 20110411
  Serious: Yes (Life-Threatening, Hospitalization)
  Sender: FDA-Public Use
  Company Number: AUR-APL-2010-02441

PATIENT
  Age: 60 Year
  Sex: Female
  Weight: 115 kg

DRUGS (4)
  1. METFORMIN HCL [Suspect]
     Indication: METABOLIC SYNDROME
     Dosage: 2.5MG-ORAL
     Route: 048
  2. CIPROFLOXACIN [Suspect]
     Dosage: 500MG-BID-ORAL
     Route: 048
     Dates: start: 20100721, end: 20100727
  3. METRONIDAZOLE [Suspect]
     Dosage: 50MG - BID - ORAL
     Route: 048
     Dates: start: 20100721, end: 20100727
  4. METHOTREXATE [Suspect]
     Indication: POLYARTHRITIS
     Dosage: 15 MG - ORAL
     Route: 048

REACTIONS (6)
  - ALVEOLITIS ALLERGIC [None]
  - C-REACTIVE PROTEIN INCREASED [None]
  - COUGH [None]
  - DIVERTICULITIS [None]
  - DYSPNOEA [None]
  - RESPIRATORY FAILURE [None]
